FAERS Safety Report 12114171 (Version 1)
Quarter: 2016Q1

REPORT INFORMATION
  Report Type: Spontaneous
  Country: US (occurrence: US)
  Receive Date: 20160225
  Receipt Date: 20160225
  Transmission Date: 20160526
  Serious: No
  Sender: FDA-Public Use
  Company Number: US-LANTHEUS-LMI-2015-00141

PATIENT
  Age: 70 Year
  Sex: Male
  Weight: 75 kg

DRUGS (9)
  1. DEFINITY [Suspect]
     Active Substance: PERFLUTREN
     Indication: ECHOCARDIOGRAM
     Dosage: UNDILUTED DEFINITY
     Route: 040
     Dates: start: 20150320, end: 20150320
  2. ASPIRIN. [Concomitant]
     Active Substance: ASPIRIN
  3. POTASSIUM CHLORIDE. [Concomitant]
     Active Substance: POTASSIUM CHLORIDE
  4. SIMVASTATIN. [Concomitant]
     Active Substance: SIMVASTATIN
  5. COREG [Concomitant]
     Active Substance: CARVEDILOL
  6. TORSEMIDE. [Concomitant]
     Active Substance: TORSEMIDE
  7. DEFINITY [Suspect]
     Active Substance: PERFLUTREN
     Indication: ECHOCARDIOGRAM
     Dosage: UNDILUTED DEFINITY
     Route: 040
     Dates: start: 20150320, end: 20150320
  8. INSULIN [Concomitant]
     Active Substance: INSULIN NOS
  9. LISINOPRIL. [Concomitant]
     Active Substance: LISINOPRIL

REACTIONS (1)
  - Muscle spasms [Recovered/Resolved]

NARRATIVE: CASE EVENT DATE: 20150320
